FAERS Safety Report 7843645-9 (Version None)
Quarter: 2011Q4

REPORT INFORMATION
  Report Type: 
  Country: None (occurrence: None)
  Receive Date: 20111014
  Receipt Date: 20111010
  Transmission Date: 20120403
  Serious: Yes (Hospitalization)
  Sender: FDA-Public Use
  Company Number: WAES 1104FRA00135

PATIENT
  Age: 38 Year
  Sex: Male

DRUGS (3)
  1. TAB ISENTRESS (RALTEGRAVIR POTASSIUIM) [Suspect]
     Indication: HIV INFECTION
     Dosage: 400 MG/BID, PO
     Route: 048
     Dates: start: 20110411, end: 20110415
  2. DARUNAVIR ETHANOLATE [Suspect]
     Indication: HIV INFECTION
     Dosage: 400 MG/BID, PO
     Route: 048
     Dates: start: 20110411, end: 20110415
  3. RITONAVIR [Suspect]
     Indication: HIV INFECTION
     Dosage: 100 MG/DAILY, PO
     Route: 048
     Dates: start: 20110411, end: 20110415

REACTIONS (1)
  - PNEUMOCYSTIS JIROVECI INFECTION [None]
